FAERS Safety Report 9782112 (Version 2)
Quarter: 2014Q1

REPORT INFORMATION
  Report Type: Spontaneous
  Country: IT (occurrence: IT)
  Receive Date: 20131226
  Receipt Date: 20140214
  Transmission Date: 20141002
  Serious: Yes (Hospitalization)
  Sender: FDA-Public Use
  Company Number: IT-BRISTOL-MYERS SQUIBB COMPANY-19924414

PATIENT
  Age: 80 Year
  Sex: Male

DRUGS (3)
  1. COUMADIN TABS 5 MG [Suspect]
     Indication: DEEP VEIN THROMBOSIS
     Dosage: INTERRUPTED ON 30NOV2013
     Route: 048
  2. LEUKERAN [Suspect]
     Indication: NON-HODGKIN^S LYMPHOMA
     Dosage: 2MG TABS;1 DF = 2 UNITS?INTERRUPTED ON 30NOV2013
     Route: 048
     Dates: start: 20131101
  3. PAROXETINE [Concomitant]

REACTIONS (2)
  - Gastric ulcer [Recovering/Resolving]
  - Anaemia [Recovering/Resolving]
